FAERS Safety Report 14556695 (Version 2)
Quarter: 2018Q1

REPORT INFORMATION
  Report Type: Spontaneous
  Country: US (occurrence: US)
  Receive Date: 20180221
  Receipt Date: 20180223
  Transmission Date: 20180509
  Serious: Yes (Disabling)
  Sender: FDA-Public Use
  Company Number: US-PFIZER INC-2018070823

PATIENT
  Sex: Male

DRUGS (12)
  1. GABAPENTIN. [Suspect]
     Active Substance: GABAPENTIN
     Indication: DIABETIC NEUROPATHY
     Dosage: 500MG- ONE, ONE TIME A DAY
  2. GABAPENTIN. [Suspect]
     Active Substance: GABAPENTIN
     Dosage: 500MG-TWO (1000 MG), THREE TIMES A DAY
  3. FLEXERIL [Concomitant]
     Active Substance: CYCLOBENZAPRINE HYDROCHLORIDE
     Indication: MUSCLE RELAXANT THERAPY
     Dosage: 10 MG, AS NEEDED, 10MG TABLET BY MOUTH 1 THREE TIMES A DAY IF NEEDED
     Route: 048
  4. CBD OIL [Concomitant]
     Active Substance: CANNABIDIOL
     Dosage: 2 SQUIRTS IN THE MORNING AND 2 SQUIRTS IN THE EVENING EVEY DAY
  5. GABAPENTIN. [Suspect]
     Active Substance: GABAPENTIN
     Indication: DIABETIC NEUROPATHY
     Dosage: 500 MG, 1X/DAY
  6. VICTOZA [Concomitant]
     Active Substance: LIRAGLUTIDE
     Indication: BLOOD INSULIN DECREASED
     Dosage: 1.8 IU, DAILY, 1.8 UNITS EVERY DAY
  7. GABAPENTIN. [Suspect]
     Active Substance: GABAPENTIN
     Dosage: 500MG-TWO (1000 MG), THREE TIMES A DAY
  8. AMITRIPTYLINE [Concomitant]
     Active Substance: AMITRIPTYLINE
     Indication: PAIN
     Dosage: 100MG TABLET, TAKES HALF OF ONE AT BEDTIME BY MOUTH WHEN NEEDED
     Route: 048
  9. TRAZODONE [Concomitant]
     Active Substance: TRAZODONE HYDROCHLORIDE
     Indication: PAIN
     Dosage: 50 MG, AS NEEDED,50MG BY MOUTH AS NEEDED
     Route: 048
  10. TRAZODONE [Concomitant]
     Active Substance: TRAZODONE HYDROCHLORIDE
     Indication: DIABETIC NEUROPATHY
  11. TOUJEO [Concomitant]
     Active Substance: INSULIN GLARGINE
     Indication: DIABETES MELLITUS
     Dosage: 7 TO 4 UNITS DAILY
  12. AMITRIPTYLINE [Concomitant]
     Active Substance: AMITRIPTYLINE
     Indication: SLEEP DISORDER

REACTIONS (1)
  - Drug ineffective for unapproved indication [Unknown]
